FAERS Safety Report 20949162 (Version 2)
Quarter: 2022Q3

REPORT INFORMATION
  Report Type: Spontaneous
  Country: US (occurrence: US)
  Receive Date: 20220613
  Receipt Date: 20220809
  Transmission Date: 20221027
  Serious: No
  Sender: FDA-Public Use
  Company Number: US-BRISTOL-MYERS SQUIBB COMPANY-2022-042365

PATIENT
  Age: 53 Year
  Sex: Female

DRUGS (1)
  1. ORENCIA [Suspect]
     Active Substance: ABATACEPT
     Indication: Rheumatoid arthritis
     Dosage: STRENGTH -250 MG/VL.?PATIENT STARTED THE ORENCIA AT A FREQUENCY OF -INFUSE 750 MG INTRAVENOUSLY AT W
     Route: 042
     Dates: start: 202204

REACTIONS (2)
  - Pain [Unknown]
  - Drug ineffective [Unknown]
